FAERS Safety Report 23849073 (Version 1)
Quarter: 2024Q2

REPORT INFORMATION
  Report Type: Spontaneous
  Country: US (occurrence: US)
  Receive Date: 20240513
  Receipt Date: 20240513
  Transmission Date: 20240716
  Serious: No
  Sender: FDA-Public Use
  Company Number: US-SA-SAC20240508000313

PATIENT
  Sex: Female
  Weight: 86.168 kg

DRUGS (6)
  1. DUPIXENT [Suspect]
     Active Substance: DUPILUMAB
     Indication: Asthma
     Dosage: 300 MG
     Route: 058
  2. DUPIXENT [Suspect]
     Active Substance: DUPILUMAB
     Indication: Nasal polyps
     Dosage: 200 MG, Q4W
     Route: 058
  3. CLOBETASOL [Concomitant]
     Active Substance: CLOBETASOL
  4. ESTRADIOL [Concomitant]
     Active Substance: ESTRADIOL
     Dosage: TWICE WEEKLY
  5. METOPROLOL SUCCINATE [Concomitant]
     Active Substance: METOPROLOL SUCCINATE
  6. ELIQUIS [Concomitant]
     Active Substance: APIXABAN

REACTIONS (8)
  - Parosmia [Recovered/Resolved]
  - Nausea [Recovered/Resolved]
  - Nasal congestion [Unknown]
  - Nasal dryness [Unknown]
  - Atrial flutter [Unknown]
  - Psoriasis [Unknown]
  - Alopecia [Unknown]
  - Skin hypertrophy [Unknown]
